FAERS Safety Report 8967641 (Version 1)
Quarter: 2012Q4

REPORT INFORMATION
  Report Type: Spontaneous
  Country: DK (occurrence: None)
  Receive Date: 20121204
  Receipt Date: 20121204
  Transmission Date: 20130627
  Serious: Yes (Other)
  Sender: FDA-Public Use
  Company Number: 2012MA013730

PATIENT
  Age: 49 Year
  Sex: Female

DRUGS (1)
  1. OXAZEPAM [Suspect]
     Indication: DRUG USE FOR UNKNOWN INDICATION

REACTIONS (5)
  - Confusional state [None]
  - Pain in extremity [None]
  - Hyperhidrosis [None]
  - Tension [None]
  - Vision blurred [None]
